FAERS Safety Report 24314115 (Version 1)
Quarter: 2024Q3

REPORT INFORMATION
  Report Type: Spontaneous
  Country: CA (occurrence: CA)
  Receive Date: 20240912
  Receipt Date: 20240912
  Transmission Date: 20241016
  Serious: Yes (Death, Life-Threatening, Hospitalization, Disabling, Congenital Anomaly, Other)
  Sender: PURDUE
  Company Number: CA-PURDUE-USA-2024-0311919

PATIENT
  Age: 40 Year
  Sex: Female

DRUGS (252)
  1. BUTRANS [Suspect]
     Active Substance: BUPRENORPHINE
     Indication: Product used for unknown indication
     Dosage: UNK
     Route: 065
  2. OXYCODONE HYDROCHLORIDE [Suspect]
     Active Substance: OXYCODONE HYDROCHLORIDE
     Indication: Product used for unknown indication
     Dosage: UNK
     Route: 065
  3. TRAMADOL HYDROCHLORIDE [Suspect]
     Active Substance: TRAMADOL HYDROCHLORIDE
     Indication: Rheumatoid arthritis
     Dosage: UNK
     Route: 065
  4. TRAMADOL HYDROCHLORIDE [Suspect]
     Active Substance: TRAMADOL HYDROCHLORIDE
     Dosage: UNK
     Route: 014
  5. ACETAMINOPHEN [Suspect]
     Active Substance: ACETAMINOPHEN
     Indication: Rheumatoid arthritis
     Dosage: UNK
     Route: 065
  6. ACETAMINOPHEN [Suspect]
     Active Substance: ACETAMINOPHEN
     Dosage: 20.0 MILLIGRAM
     Route: 065
  7. ACETAMINOPHEN AND CODEINE [Suspect]
     Active Substance: ACETAMINOPHEN\CODEINE PHOSPHATE
     Indication: Product used for unknown indication
     Dosage: UNK
     Route: 065
  8. ACTEMRA [Suspect]
     Active Substance: TOCILIZUMAB
     Indication: Rheumatoid arthritis
     Dosage: UNK
     Route: 061
  9. ACTEMRA [Suspect]
     Active Substance: TOCILIZUMAB
     Indication: Abdominal discomfort
     Dosage: UNK
     Route: 058
  10. ACTEMRA [Suspect]
     Active Substance: TOCILIZUMAB
     Dosage: 728.0 MILLIGRAM
     Route: 040
  11. ACTEMRA [Suspect]
     Active Substance: TOCILIZUMAB
     Dosage: 728.0 MILLIGRAM
     Route: 040
  12. ACTEMRA [Suspect]
     Active Substance: TOCILIZUMAB
     Dosage: 8.0 MG/KG
     Route: 048
  13. ACTEMRA [Suspect]
     Active Substance: TOCILIZUMAB
     Dosage: 20.0 MILLIGRAM
     Route: 065
  14. ACTEMRA [Suspect]
     Active Substance: TOCILIZUMAB
     Dosage: 162.0 MILLIGRAM
     Route: 058
  15. ACTEMRA [Suspect]
     Active Substance: TOCILIZUMAB
     Dosage: 2912.0 MILLIGRAM
     Route: 058
  16. ACTEMRA [Suspect]
     Active Substance: TOCILIZUMAB
     Dosage: UNK
     Route: 065
  17. ACTEMRA [Suspect]
     Active Substance: TOCILIZUMAB
     Dosage: UNK
     Route: 016
  18. ACTEMRA [Suspect]
     Active Substance: TOCILIZUMAB
     Dosage: 728.0 MILLIGRAM
     Route: 058
  19. ACTEMRA [Suspect]
     Active Substance: TOCILIZUMAB
     Dosage: 752.8 MILLIGRAM
     Route: 058
  20. ACTEMRA [Suspect]
     Active Substance: TOCILIZUMAB
     Dosage: 752.8 MILLIGRAM
     Route: 040
  21. ACTEMRA [Suspect]
     Active Substance: TOCILIZUMAB
     Dosage: 25.0 MILLIGRAM,1 EVERY 1 WEEKS
     Route: 058
  22. ACTEMRA [Suspect]
     Active Substance: TOCILIZUMAB
     Dosage: 8.0 MILLIGRAM
     Route: 040
  23. ACTEMRA [Suspect]
     Active Substance: TOCILIZUMAB
     Dosage: 8.0 MILLIGRAM
     Route: 065
  24. ACTEMRA [Suspect]
     Active Substance: TOCILIZUMAB
     Dosage: 8.0 MG/KG
     Route: 065
  25. ACTEMRA [Suspect]
     Active Substance: TOCILIZUMAB
     Dosage: 3011.2 MILLIGRAM
     Route: 040
  26. ADALIMUMAB [Suspect]
     Active Substance: ADALIMUMAB
     Indication: Rheumatoid arthritis
     Dosage: UNK
     Route: 058
  27. ADALIMUMAB [Suspect]
     Active Substance: ADALIMUMAB
     Dosage: 40.0 MILLIGRAM
     Route: 058
  28. AIMOVIG [Suspect]
     Active Substance: ERENUMAB-AOOE
     Indication: Product used for unknown indication
     Dosage: UNK
     Route: 065
  29. ALENDRONIC ACID [Suspect]
     Active Substance: ALENDRONIC ACID
     Indication: Rheumatoid arthritis
     Dosage: UNK
     Route: 065
  30. ALENDRONIC ACID [Suspect]
     Active Substance: ALENDRONIC ACID
     Dosage: UNK
     Route: 016
  31. ALENDRONIC ACID [Suspect]
     Active Substance: ALENDRONIC ACID
     Dosage: UNK
     Route: 048
  32. ALENDRONATE SODIUM\CHOLECALCIFEROL [Suspect]
     Active Substance: ALENDRONATE SODIUM\CHOLECALCIFEROL
     Indication: Rheumatoid arthritis
     Dosage: UNK
     Route: 065
  33. LEFLUNOMIDE [Suspect]
     Active Substance: LEFLUNOMIDE
     Indication: Rheumatoid arthritis
     Dosage: 10.0 MILLIGRAM
     Route: 048
  34. LEFLUNOMIDE [Suspect]
     Active Substance: LEFLUNOMIDE
     Dosage: 10.0 MILLIGRAM
     Route: 065
  35. LEFLUNOMIDE [Suspect]
     Active Substance: LEFLUNOMIDE
     Dosage: 20.0 MILLIGRAM
     Route: 065
  36. PREDNISONE [Suspect]
     Active Substance: PREDNISONE
     Indication: Product used for unknown indication
     Dosage: 5.0 MILLIGRAM
     Route: 048
  37. PREDNISONE [Suspect]
     Active Substance: PREDNISONE
     Dosage: 5.0 MILLIGRAM
     Route: 065
  38. PREDNISONE [Suspect]
     Active Substance: PREDNISONE
     Dosage: 40.0 MILLIGRAM
     Route: 065
  39. PREDNISONE [Suspect]
     Active Substance: PREDNISONE
     Dosage: 1.0 MILLIGRAM
     Route: 065
  40. PREDNISONE [Suspect]
     Active Substance: PREDNISONE
     Dosage: UNK
     Route: 048
  41. PREDNISONE [Suspect]
     Active Substance: PREDNISONE
     Dosage: UNK
     Route: 065
  42. PREDNISONE [Suspect]
     Active Substance: PREDNISONE
     Dosage: 20.0 MILLIGRAM,1 EVERY 1 DAYS
     Route: 048
  43. APREMILAST [Suspect]
     Active Substance: APREMILAST
     Indication: Rheumatoid arthritis
     Dosage: 6.0 MILLIGRAM,1 EVERY 1 DAYS
     Route: 065
  44. APREMILAST [Suspect]
     Active Substance: APREMILAST
     Dosage: UNK
     Route: 065
  45. ARAVA [Suspect]
     Active Substance: LEFLUNOMIDE
     Indication: Rheumatoid arthritis
     Dosage: UNK
     Route: 065
  46. ARAVA [Suspect]
     Active Substance: LEFLUNOMIDE
     Dosage: UNK
     Route: 048
  47. ARAVA [Suspect]
     Active Substance: LEFLUNOMIDE
     Dosage: 20.0 MILLIGRAM
     Route: 048
  48. ARAVA [Suspect]
     Active Substance: LEFLUNOMIDE
     Dosage: 20.0 MILLIGRAM,1 EVERY 1 DAYS
     Route: 065
  49. ATOMOXETINE [Suspect]
     Active Substance: ATOMOXETINE HYDROCHLORIDE
     Indication: Migraine
     Dosage: UNK
     Route: 065
  50. AZATHIOPRINE SODIUM [Suspect]
     Active Substance: AZATHIOPRINE SODIUM
     Indication: Product used for unknown indication
     Dosage: UNK
     Route: 065
  51. BERINERT [Suspect]
     Active Substance: HUMAN C1-ESTERASE INHIBITOR
     Indication: Product used for unknown indication
     Dosage: UNK
     Route: 065
  52. BOTULINUM TOXIN TYPE A [Suspect]
     Active Substance: BOTULINUM TOXIN TYPE A
     Indication: Product used for unknown indication
     Dosage: UNK
     Route: 065
  53. CALCIUM ASCORBATE [Suspect]
     Active Substance: CALCIUM ASCORBATE
     Indication: Product used for unknown indication
     Dosage: UNK
     Route: 065
  54. CANDESARTAN [Suspect]
     Active Substance: CANDESARTAN
     Indication: Migraine
     Dosage: UNK
     Route: 048
  55. CELEBREX [Suspect]
     Active Substance: CELECOXIB
     Indication: Product used for unknown indication
     Dosage: 2.0 DOSAGE FORM,1 EVERY 1 DAYS
     Route: 065
  56. CELEBREX [Suspect]
     Active Substance: CELECOXIB
     Dosage: 2.0 DOSAGE FORM,1 EVERY 1 DAYS
     Route: 048
  57. CERTOLIZUMAB PEGOL [Suspect]
     Active Substance: CERTOLIZUMAB PEGOL
     Indication: Product used for unknown indication
     Dosage: 200.0 MILLIGRAM
     Route: 058
  58. CERTOLIZUMAB PEGOL [Suspect]
     Active Substance: CERTOLIZUMAB PEGOL
     Dosage: UNK
     Route: 058
  59. CERTOLIZUMAB PEGOL [Suspect]
     Active Substance: CERTOLIZUMAB PEGOL
     Dosage: UNK
     Route: 065
  60. CETIRIZINE HYDROCHLORIDE [Suspect]
     Active Substance: CETIRIZINE HYDROCHLORIDE
     Indication: Product used for unknown indication
     Dosage: 10.0 MILLIGRAM
     Route: 065
  61. CETIRIZINE HYDROCHLORIDE [Suspect]
     Active Substance: CETIRIZINE HYDROCHLORIDE
     Dosage: 10.0 MILLIGRAM
     Route: 048
  62. CETIRIZINE HYDROCHLORIDE [Suspect]
     Active Substance: CETIRIZINE HYDROCHLORIDE
     Dosage: 25.0 MILLIGRAM
     Route: 065
  63. CETIRIZINE HYDROCHLORIDE [Suspect]
     Active Substance: CETIRIZINE HYDROCHLORIDE
     Dosage: 25.0 MILLIGRAM
     Route: 048
  64. CETIRIZINE HYDROCHLORIDE [Suspect]
     Active Substance: CETIRIZINE HYDROCHLORIDE
     Dosage: UNK
     Route: 065
  65. CETIRIZINE HYDROCHLORIDE [Suspect]
     Active Substance: CETIRIZINE HYDROCHLORIDE
     Dosage: UNK
     Route: 016
  66. CHOLECALCIFEROL [Suspect]
     Active Substance: CHOLECALCIFEROL
     Indication: Product used for unknown indication
     Dosage: UNK
     Route: 065
  67. CIMZIA [Suspect]
     Active Substance: CERTOLIZUMAB PEGOL
     Indication: Rheumatoid arthritis
     Dosage: 400.0 MILLIGRAM
     Route: 058
  68. CIMZIA [Suspect]
     Active Substance: CERTOLIZUMAB PEGOL
     Indication: Psoriasis
     Dosage: UNK
     Route: 065
  69. CIMZIA [Suspect]
     Active Substance: CERTOLIZUMAB PEGOL
     Dosage: 200.0 MILLIGRAM
     Route: 058
  70. CIMZIA [Suspect]
     Active Substance: CERTOLIZUMAB PEGOL
     Dosage: UNK
     Route: 058
  71. CORTISONE ACETATE [Suspect]
     Active Substance: CORTISONE ACETATE
     Indication: Rheumatoid arthritis
     Dosage: UNK
     Route: 065
  72. CORTISONE ACETATE [Suspect]
     Active Substance: CORTISONE ACETATE
     Dosage: UNK
     Route: 048
  73. CORTISONE ACETATE [Suspect]
     Active Substance: CORTISONE ACETATE
     Dosage: UNK
     Route: 061
  74. COSENTYX [Suspect]
     Active Substance: SECUKINUMAB
     Indication: Rheumatoid arthritis
     Dosage: UNK
     Route: 065
  75. COSENTYX [Suspect]
     Active Substance: SECUKINUMAB
     Indication: Psoriatic arthropathy
  76. DESOXIMETASONE [Suspect]
     Active Substance: DESOXIMETASONE
     Indication: Rheumatoid arthritis
     Dosage: UNK
     Route: 048
  77. DESOXIMETASONE [Suspect]
     Active Substance: DESOXIMETASONE
     Indication: Product used for unknown indication
     Dosage: UNK
     Route: 065
  78. DESOXIMETASONE [Suspect]
     Active Substance: DESOXIMETASONE
     Dosage: UNK
     Route: 058
  79. DESOXIMETASONE [Suspect]
     Active Substance: DESOXIMETASONE
     Dosage: 25.0 MILLIGRAM
     Route: 065
  80. DESOXIMETASONE [Suspect]
     Active Substance: DESOXIMETASONE
     Dosage: 25.0 MILLIGRAM
     Route: 048
  81. DICLOFENAC DIETHYLAMINE [Suspect]
     Active Substance: DICLOFENAC DIETHYLAMINE
     Indication: Product used for unknown indication
     Dosage: UNK
     Route: 065
  82. DICLOFENAC SODIUM [Suspect]
     Active Substance: DICLOFENAC\DICLOFENAC SODIUM
     Indication: Product used for unknown indication
     Dosage: UNK
     Route: 058
  83. DICLOFENAC SODIUM [Suspect]
     Active Substance: DICLOFENAC\DICLOFENAC SODIUM
     Dosage: UNK
     Route: 065
  84. DICLOFENAC SODIUM [Suspect]
     Active Substance: DICLOFENAC\DICLOFENAC SODIUM
     Dosage: 50.0 MILLIGRAM
     Route: 065
  85. DOMPERIDONE MALEATE [Suspect]
     Active Substance: DOMPERIDONE MALEATE
     Indication: Product used for unknown indication
     Dosage: UNK
     Route: 065
  86. ENBREL [Suspect]
     Active Substance: ETANERCEPT
     Indication: Rheumatoid arthritis
     Dosage: 50.0 MILLIGRAM
     Route: 058
  87. ENBREL [Suspect]
     Active Substance: ETANERCEPT
     Dosage: UNK
     Route: 058
  88. ENBREL [Suspect]
     Active Substance: ETANERCEPT
     Dosage: UNK
     Route: 065
  89. ENBREL [Suspect]
     Active Substance: ETANERCEPT
     Dosage: 10.0 MILLIGRAM,1 EVERY 1 WEEKS
     Route: 065
  90. ERELZI [Suspect]
     Active Substance: ETANERCEPT-SZZS
     Indication: Rheumatoid arthritis
     Dosage: UNK
     Route: 058
  91. ERELZI [Suspect]
     Active Substance: ETANERCEPT-SZZS
     Dosage: UNK
     Route: 065
  92. FLUMETHASONE [Suspect]
     Active Substance: FLUMETHASONE
     Indication: Product used for unknown indication
     Dosage: UNK
     Route: 065
  93. FLUMETHASONE [Suspect]
     Active Substance: FLUMETHASONE
     Dosage: UNK
     Route: 058
  94. FOSAMAX [Suspect]
     Active Substance: ALENDRONATE SODIUM
     Indication: Rheumatoid arthritis
     Dosage: UNK
     Route: 065
  95. FOSAMAX [Suspect]
     Active Substance: ALENDRONATE SODIUM
     Dosage: UNK
     Route: 058
  96. FOSAMAX [Suspect]
     Active Substance: ALENDRONATE SODIUM
     Dosage: UNK
     Route: 016
  97. FOSAMAX [Suspect]
     Active Substance: ALENDRONATE SODIUM
     Dosage: UNK
     Route: 048
  98. GOLD [Suspect]
     Active Substance: GOLD
     Indication: Product used for unknown indication
     Dosage: UNK
     Route: 065
  99. GOLD SODIUM THIOMALATE [Suspect]
     Active Substance: GOLD SODIUM THIOMALATE
     Indication: Product used for unknown indication
     Dosage: UNK
     Route: 065
  100. GOLIMUMAB [Suspect]
     Active Substance: GOLIMUMAB
     Indication: Rheumatoid arthritis
     Dosage: UNK
     Route: 058
  101. GOLIMUMAB [Suspect]
     Active Substance: GOLIMUMAB
     Indication: Prostatic specific antigen
     Dosage: UNK
     Route: 065
  102. HUMIRA [Suspect]
     Active Substance: ADALIMUMAB
     Indication: Rheumatoid arthritis
     Dosage: UNK
     Route: 058
  103. HUMIRA [Suspect]
     Active Substance: ADALIMUMAB
     Dosage: UNK
     Route: 065
  104. HUMIRA [Suspect]
     Active Substance: ADALIMUMAB
     Dosage: 40.0 MILLIGRAM
     Route: 058
  105. HYDROCORTISONE [Suspect]
     Active Substance: HYDROCORTISONE\HYDROCORTISONE ACETATE
     Indication: Product used for unknown indication
     Dosage: UNK
     Route: 065
  106. HYDROXYCHLOROQUINE [Suspect]
     Active Substance: HYDROXYCHLOROQUINE
     Indication: Rheumatoid arthritis
     Dosage: UNK
     Route: 048
  107. HYDROXYCHLOROQUINE [Suspect]
     Active Substance: HYDROXYCHLOROQUINE
     Dosage: UNK
     Route: 065
  108. HYDROXYCHLOROQUINE [Suspect]
     Active Substance: HYDROXYCHLOROQUINE
     Dosage: 40.0 MILLIGRAM
     Route: 065
  109. HYDROXYCHLOROQUINE [Suspect]
     Active Substance: HYDROXYCHLOROQUINE
     Dosage: 40.0 MILLIGRAM
     Route: 048
  110. HYDROXYCHLOROQUINE [Suspect]
     Active Substance: HYDROXYCHLOROQUINE
     Dosage: 400.0 MILLIGRAM,1 EVERY 1 DAYS
     Route: 065
  111. HYDROXYCHLOROQUINE [Suspect]
     Active Substance: HYDROXYCHLOROQUINE
     Dosage: 400.0 MILLIGRAM,1 EVERY 1 DAYS
     Route: 048
  112. HYDROXYCHLOROQUINE [Suspect]
     Active Substance: HYDROXYCHLOROQUINE
     Dosage: UNK
     Route: 058
  113. HYDROXYCHLOROQUINE [Suspect]
     Active Substance: HYDROXYCHLOROQUINE
     Dosage: UNK
     Route: 016
  114. HYDROXYCHLOROQUINE [Suspect]
     Active Substance: HYDROXYCHLOROQUINE
     Dosage: 40.0 MILLIGRAM,1 EVERY 1 DAY
     Route: 065
  115. HYDROXYCHLOROQUINE [Suspect]
     Active Substance: HYDROXYCHLOROQUINE
     Dosage: 400.0 MILLIGRAM
     Route: 065
  116. HYDROXYCHLOROQUINE [Suspect]
     Active Substance: HYDROXYCHLOROQUINE
     Dosage: 200.0 MILLIGRAM
     Route: 065
  117. INFLIXIMAB [Suspect]
     Active Substance: INFLIXIMAB
     Indication: Rheumatoid arthritis
     Dosage: UNK
     Route: 040
  118. INFLIXIMAB [Suspect]
     Active Substance: INFLIXIMAB
     Dosage: 400.0 MILLIGRAM
     Route: 040
  119. LAMICTAL [Suspect]
     Active Substance: LAMOTRIGINE
     Indication: Product used for unknown indication
     Dosage: 25.0 MILLIGRAM
     Route: 048
  120. LAMICTAL [Suspect]
     Active Substance: LAMOTRIGINE
     Dosage: 50.0 MILLIGRAM
     Route: 048
  121. LEFLUNOMIDE [Suspect]
     Active Substance: LEFLUNOMIDE
     Indication: Rheumatoid arthritis
     Dosage: UNK
     Route: 048
  122. LEFLUNOMIDE [Suspect]
     Active Substance: LEFLUNOMIDE
     Dosage: UNK
     Route: 065
  123. LEFLUNOMIDE [Suspect]
     Active Substance: LEFLUNOMIDE
     Dosage: 20.0 MILLIGRAM
     Route: 065
  124. LEFLUNOMIDE [Suspect]
     Active Substance: LEFLUNOMIDE
     Dosage: 20.0 MILLIGRAM,1 EVERY 1 DAYS
     Route: 065
  125. LEFLUNOMIDE [Suspect]
     Active Substance: LEFLUNOMIDE
     Dosage: 10.0 MILLIGRAM,1 EVERY 1 DAYS
     Route: 065
  126. LEFLUNOMIDE [Suspect]
     Active Substance: LEFLUNOMIDE
     Dosage: 10.0 MILLIGRAM,1 EVERY 1 DAYS
     Route: 048
  127. METFORMIN HYDROCHLORIDE [Suspect]
     Active Substance: METFORMIN HYDROCHLORIDE
     Indication: Product used for unknown indication
     Dosage: UNK
     Route: 040
  128. METHOTREXATE [Suspect]
     Active Substance: METHOTREXATE
     Indication: Rheumatoid arthritis
     Dosage: 25.0 MILLIGRAM, 1 EVERY 1 DAYS
     Route: 048
  129. METHOTREXATE [Suspect]
     Active Substance: METHOTREXATE
     Dosage: UNK
     Route: 048
  130. METHOTREXATE [Suspect]
     Active Substance: METHOTREXATE
     Dosage: 25.0 MILLIGRAM,1 EVERY 1 WEEKS
     Route: 065
  131. METHOTREXATE [Suspect]
     Active Substance: METHOTREXATE
     Dosage: 25.0 MILLIGRAM
     Route: 065
  132. METHOTREXATE [Suspect]
     Active Substance: METHOTREXATE
     Dosage: 50.0 MILLIGRAM, 1 EVERY 1 DAYS
     Route: 065
  133. METHOTREXATE [Suspect]
     Active Substance: METHOTREXATE
     Dosage: 25.0 MILLIGRAM
     Route: 013
  134. METHOTREXATE [Suspect]
     Active Substance: METHOTREXATE
     Dosage: 25.0 MILLIGRAM,1 EVERY 1 WEEKS
     Route: 048
  135. METHOTREXATE [Suspect]
     Active Substance: METHOTREXATE
     Dosage: 25.0 MILLIGRAM,1 EVERY 1 WEEKS
     Route: 013
  136. METHOTREXATE [Suspect]
     Active Substance: METHOTREXATE
     Dosage: 1.0 MILLIGRAM
     Route: 048
  137. METHOTREXATE [Suspect]
     Active Substance: METHOTREXATE
     Dosage: 15.0 MILLIGRAM,1 EVERY 1 WEEKS
     Route: 048
  138. METHOTREXATE [Suspect]
     Active Substance: METHOTREXATE
     Dosage: 20.0 MILLIGRAM,1 EVERY 1 WEEKS
     Route: 048
  139. METHOTREXATE [Suspect]
     Active Substance: METHOTREXATE
     Dosage: 20.0 MILLIGRAM,1 EVERY 1 WEEKS
     Route: 058
  140. METHOTREXATE [Suspect]
     Active Substance: METHOTREXATE
     Dosage: 40.0 MILLIGRAM,1 EVERY 1 WEEKS
     Route: 048
  141. METHOTREXATE [Suspect]
     Active Substance: METHOTREXATE
     Dosage: 225.0 MILLIGRAM,1 EVERY 1 WEEKS
     Route: 065
  142. METHOTREXATE [Suspect]
     Active Substance: METHOTREXATE
     Dosage: UNK
     Route: 016
  143. METHOTREXATE [Suspect]
     Active Substance: METHOTREXATE
     Dosage: 50.0 MILLIGRAM, 1 EVERY 1 DAYS
     Route: 048
  144. METHYLPREDNISOLONE [Suspect]
     Active Substance: METHYLPREDNISOLONE
     Indication: Product used for unknown indication
     Dosage: 80.0 MILLIGRAM
     Route: 065
  145. METHYLPREDNISOLONE [Suspect]
     Active Substance: METHYLPREDNISOLONE
     Dosage: UNK
     Route: 065
  146. MINOCYCLINE [Suspect]
     Active Substance: MINOCYCLINE HYDROCHLORIDE
     Indication: Product used for unknown indication
     Dosage: UNK
     Route: 065
  147. MINOCYCLINE [Suspect]
     Active Substance: MINOCYCLINE HYDROCHLORIDE
     Dosage: UNK
     Route: 030
  148. MYRBETRIQ [Suspect]
     Active Substance: MIRABEGRON
     Indication: Product used for unknown indication
     Dosage: 1.0 DOSAGE FORM
     Route: 065
  149. MYRBETRIQ [Suspect]
     Active Substance: MIRABEGRON
     Dosage: 1.0 DOSAGE FORM,1 EVERY 1 DAYS
     Route: 065
  150. MYRBETRIQ [Suspect]
     Active Substance: MIRABEGRON
     Indication: Product used for unknown indication
     Dosage: 1.0 DOSAGE FORM
     Route: 065
  151. NAPROXEN [Suspect]
     Active Substance: NAPROXEN
     Indication: Product used for unknown indication
     Dosage: UNK
     Route: 065
  152. NAPROXEN SODIUM [Suspect]
     Active Substance: NAPROXEN\NAPROXEN SODIUM
     Indication: Product used for unknown indication
     Dosage: 500.0 MILLIGRAM
     Route: 065
  153. NUCALA [Suspect]
     Active Substance: MEPOLIZUMAB
     Indication: Product used for unknown indication
     Dosage: UNK
     Route: 065
  154. ORENCIA [Suspect]
     Active Substance: ABATACEPT
     Indication: Rheumatoid arthritis
     Dosage: UNK
     Route: 058
  155. ORENCIA [Suspect]
     Active Substance: ABATACEPT
     Dosage: UNK
     Route: 065
  156. ORENCIA [Suspect]
     Active Substance: ABATACEPT
     Dosage: 750.0 MILLIGRAM
     Route: 065
  157. ORENCIA [Suspect]
     Active Substance: ABATACEPT
     Dosage: 750.0 MILLIGRAM
     Route: 040
  158. ORENCIA [Suspect]
     Active Substance: ABATACEPT
     Dosage: UNK
     Route: 040
  159. ORENCIA [Suspect]
     Active Substance: ABATACEPT
     Dosage: 365.0 DOSAGE FORM
     Route: 040
  160. ORENCIA [Suspect]
     Active Substance: ABATACEPT
     Dosage: 250.0 MILLIGRAM
     Route: 065
  161. ORENCIA [Suspect]
     Active Substance: ABATACEPT
     Dosage: 125.0 MILLIGRAM
     Route: 065
  162. ORENCIA [Suspect]
     Active Substance: ABATACEPT
     Dosage: 160.0 MILLIGRAM
     Route: 065
  163. OXYCODONE TEREPHTHALATE [Suspect]
     Active Substance: OXYCODONE TEREPHTHALATE
     Indication: Product used for unknown indication
     Dosage: UNK
     Route: 065
  164. PHENYLEPHRINE HYDROCHLORIDE [Suspect]
     Active Substance: PHENYLEPHRINE HYDROCHLORIDE
     Indication: Rheumatoid arthritis
     Dosage: 10.0 MILLIGRAM
     Route: 065
  165. PHTHALYLSULFATHIAZOLE [Suspect]
     Active Substance: PHTHALYLSULFATHIAZOLE
     Indication: Rheumatoid arthritis
     Dosage: 400.0 MILLIGRAM
     Route: 065
  166. PHTHALYLSULFATHIAZOLE [Suspect]
     Active Substance: PHTHALYLSULFATHIAZOLE
     Dosage: UNK
     Route: 065
  167. PHTHALYLSULFATHIAZOLE [Suspect]
     Active Substance: PHTHALYLSULFATHIAZOLE
     Dosage: 500.0 MILLIGRAM
     Route: 048
  168. PHTHALYLSULFATHIAZOLE [Suspect]
     Active Substance: PHTHALYLSULFATHIAZOLE
     Dosage: UNK
     Route: 058
  169. PHTHALYLSULFATHIAZOLE [Suspect]
     Active Substance: PHTHALYLSULFATHIAZOLE
     Dosage: UNK
     Route: 040
  170. PHTHALYLSULFATHIAZOLE [Suspect]
     Active Substance: PHTHALYLSULFATHIAZOLE
     Dosage: 2000.0 MILLIGRAM,1 EVERY 1 DAYS
     Route: 048
  171. PREDNISONE [Suspect]
     Active Substance: PREDNISONE
     Indication: Rheumatoid arthritis
     Dosage: UNK
     Route: 065
  172. PREDNISONE [Suspect]
     Active Substance: PREDNISONE
     Dosage: UNK
     Route: 048
  173. PREDNISONE [Suspect]
     Active Substance: PREDNISONE
     Dosage: 1.0 MILLIGRAM
     Route: 048
  174. PREDNISONE [Suspect]
     Active Substance: PREDNISONE
     Dosage: 5.0 MILLIGRAM
     Route: 048
  175. PREDNISONE [Suspect]
     Active Substance: PREDNISONE
     Dosage: 5.0 MILLIGRAM
     Route: 065
  176. PREDNISONE [Suspect]
     Active Substance: PREDNISONE
     Dosage: 20.0 MILLIGRAM,1 EVERY 1 DAYS
     Route: 065
  177. PREDNISONE [Suspect]
     Active Substance: PREDNISONE
     Dosage: 10.0 MILLIGRAM
     Route: 065
  178. PREDNISONE [Suspect]
     Active Substance: PREDNISONE
     Dosage: 50.0 MILLIGRAM,1 EVERY 1 DAYS
     Route: 065
  179. PREDNISONE [Suspect]
     Active Substance: PREDNISONE
     Dosage: 1.0 MILLIGRAM
     Route: 065
  180. PSEUDOEPHEDRINE HYDROCHLORIDE [Suspect]
     Active Substance: PSEUDOEPHEDRINE HYDROCHLORIDE
     Indication: Rheumatoid arthritis
     Dosage: 1.0 MILLIGRAM
     Route: 065
  181. PSEUDOEPHEDRINE HYDROCHLORIDE [Suspect]
     Active Substance: PSEUDOEPHEDRINE HYDROCHLORIDE
     Dosage: 10.0 MILLIGRAM
     Route: 065
  182. PSEUDOEPHEDRINE HYDROCHLORIDE [Suspect]
     Active Substance: PSEUDOEPHEDRINE HYDROCHLORIDE
     Dosage: UNK
     Route: 065
  183. PSEUDOEPHEDRINE HYDROCHLORIDE [Suspect]
     Active Substance: PSEUDOEPHEDRINE HYDROCHLORIDE
     Dosage: 25.0 MILLIGRAM
     Route: 065
  184. RAMIPRIL [Suspect]
     Active Substance: RAMIPRIL
     Indication: Rheumatoid arthritis
     Dosage: UNK
     Route: 040
  185. RAMIPRIL [Suspect]
     Active Substance: RAMIPRIL
     Dosage: UNK
     Route: 065
  186. RAMIPRIL [Suspect]
     Active Substance: RAMIPRIL
     Dosage: UNK
     Route: 016
  187. RANITIDINE [Suspect]
     Active Substance: RANITIDINE
     Indication: Product used for unknown indication
     Dosage: UNK
     Route: 065
  188. CETIRIZINE HYDROCHLORIDE\PSEUDOEPHEDRINE HYDROCHLORIDE [Suspect]
     Active Substance: CETIRIZINE HYDROCHLORIDE\PSEUDOEPHEDRINE HYDROCHLORIDE
     Indication: Rheumatoid arthritis
     Dosage: UNK
     Route: 065
  189. CETIRIZINE HYDROCHLORIDE\PSEUDOEPHEDRINE HYDROCHLORIDE [Suspect]
     Active Substance: CETIRIZINE HYDROCHLORIDE\PSEUDOEPHEDRINE HYDROCHLORIDE
     Dosage: 10.0 MILLIGRAM
     Route: 065
  190. CETIRIZINE HYDROCHLORIDE\PSEUDOEPHEDRINE HYDROCHLORIDE [Suspect]
     Active Substance: CETIRIZINE HYDROCHLORIDE\PSEUDOEPHEDRINE HYDROCHLORIDE
     Dosage: 25.0 MILLIGRAM
     Route: 065
  191. CETIRIZINE HYDROCHLORIDE\PSEUDOEPHEDRINE HYDROCHLORIDE [Suspect]
     Active Substance: CETIRIZINE HYDROCHLORIDE\PSEUDOEPHEDRINE HYDROCHLORIDE
     Dosage: UNK
     Route: 040
  192. REMICADE [Suspect]
     Active Substance: INFLIXIMAB
     Indication: Rheumatoid arthritis
     Dosage: UNK
     Route: 040
  193. REMICADE [Suspect]
     Active Substance: INFLIXIMAB
     Dosage: UNK
     Route: 058
  194. REMICADE [Suspect]
     Active Substance: INFLIXIMAB
     Dosage: 500.0 MILLIGRAM
     Route: 040
  195. REMICADE [Suspect]
     Active Substance: INFLIXIMAB
     Dosage: 300.0 MILLIGRAM
     Route: 040
  196. REMICADE [Suspect]
     Active Substance: INFLIXIMAB
     Dosage: UNK
     Route: 065
  197. RITUXIMAB [Suspect]
     Active Substance: RITUXIMAB
     Indication: Rheumatoid arthritis
     Dosage: UNK
     Route: 058
  198. RITUXIMAB [Suspect]
     Active Substance: RITUXIMAB
     Dosage: UNK
     Route: 040
  199. RITUXIMAB [Suspect]
     Active Substance: RITUXIMAB
     Dosage: 2000.0 MILLIGRAM,1 EVERY 1 DAYS
     Route: 065
  200. RITUXIMAB [Suspect]
     Active Substance: RITUXIMAB
     Dosage: 365.0 MILLIGRAM
     Route: 040
  201. RITUXIMAB [Suspect]
     Active Substance: RITUXIMAB
     Dosage: UNK
     Route: 043
  202. RITUXIMAB [Suspect]
     Active Substance: RITUXIMAB
     Dosage: UNK
     Route: 016
  203. RITUXIMAB [Suspect]
     Active Substance: RITUXIMAB
     Dosage: 2.0 GRAM,1 EVERY 1 DAYS
     Route: 040
  204. RITUXIMAB [Suspect]
     Active Substance: RITUXIMAB
     Dosage: 365.0 MILLIGRAM
     Route: 065
  205. SIMPONI [Suspect]
     Active Substance: GOLIMUMAB
     Indication: Product used for unknown indication
     Dosage: UNK
     Route: 058
  206. SIMPONI [Suspect]
     Active Substance: GOLIMUMAB
     Dosage: 50.0 MILLIGRAM
     Route: 058
  207. SIMPONI [Suspect]
     Active Substance: GOLIMUMAB
     Dosage: 50.0 MILLIGRAM
     Route: 065
  208. SIMPONI [Suspect]
     Active Substance: GOLIMUMAB
     Dosage: UNK
     Route: 065
  209. SIRUKUMAB [Suspect]
     Active Substance: SIRUKUMAB
     Indication: Product used for unknown indication
     Dosage: UNK
     Route: 065
  210. GOLD SODIUM THIOMALATE [Suspect]
     Active Substance: GOLD SODIUM THIOMALATE
     Indication: Product used for unknown indication
     Dosage: UNK
     Route: 065
  211. GOLD SODIUM THIOMALATE [Suspect]
     Active Substance: GOLD SODIUM THIOMALATE
     Dosage: UNK
     Route: 048
  212. STELARA [Suspect]
     Active Substance: USTEKINUMAB
     Indication: Product used for unknown indication
     Dosage: UNK
     Route: 058
  213. STELARA [Suspect]
     Active Substance: USTEKINUMAB
     Dosage: 40.0 MILLIGRAM
     Route: 065
  214. SULFASALAZINE [Suspect]
     Active Substance: SULFASALAZINE
     Indication: Rheumatoid arthritis
     Dosage: UNK
     Route: 065
  215. SULFASALAZINE [Suspect]
     Active Substance: SULFASALAZINE
     Dosage: 1.0 DOSAGE FORM
     Route: 065
  216. SULFASALAZINE [Suspect]
     Active Substance: SULFASALAZINE
     Dosage: 500.0 MILLIGRAM
     Route: 065
  217. SULFASALAZINE [Suspect]
     Active Substance: SULFASALAZINE
     Dosage: 2000.0 MILLIGRAM,1 EVERY 1 DAYS
     Route: 065
  218. SULFASALAZINE [Suspect]
     Active Substance: SULFASALAZINE
     Dosage: UNK
     Route: 058
  219. SULFASALAZINE [Suspect]
     Active Substance: SULFASALAZINE
     Dosage: UNK
     Route: 048
  220. SULFASALAZINE [Suspect]
     Active Substance: SULFASALAZINE
     Dosage: 1.0 GRAM,1 EVERY 1 DAYS
     Route: 065
  221. SULFASALAZINE [Suspect]
     Active Substance: SULFASALAZINE
     Dosage: 300.0 MILLIGRAM,1 EVERY 1 DAYS
     Route: 065
  222. SULFASALAZINE [Suspect]
     Active Substance: SULFASALAZINE
     Dosage: 1000.0 MILLIGRAM
     Route: 058
  223. SULFASALAZINE [Suspect]
     Active Substance: SULFASALAZINE
     Dosage: 4.0 MILLIGRAM,1 EVERY 1 DAYS
     Route: 058
  224. SULFASALAZINE [Suspect]
     Active Substance: SULFASALAZINE
     Dosage: UNK
     Route: 016
  225. SULFASALAZINE [Suspect]
     Active Substance: SULFASALAZINE
     Dosage: 10.0 MILLIGRAM
     Route: 058
  226. SULFASALAZINE [Suspect]
     Active Substance: SULFASALAZINE
     Dosage: 100.0 MILLIGRAM
     Route: 048
  227. SULFASALAZINE [Suspect]
     Active Substance: SULFASALAZINE
     Dosage: 1.0 MILLIGRAM
     Route: 048
  228. SULFASALAZINE [Suspect]
     Active Substance: SULFASALAZINE
     Dosage: 2.0 DOSAGE FORM,1 EVERY 1 DAYS
     Route: 048
  229. SULFASALAZINE [Suspect]
     Active Substance: SULFASALAZINE
     Dosage: 2.0 GRAM,1 EVERY 1 DAYS
     Route: 065
  230. SULFASALAZINE [Suspect]
     Active Substance: SULFASALAZINE
     Dosage: 2.0 GRAM,1 EVERY 1 DAYS
     Route: 058
  231. SULFASALAZINE [Suspect]
     Active Substance: SULFASALAZINE
     Dosage: 500.0 MILLIGRAM
     Route: 058
  232. TOCILIZUMAB [Suspect]
     Active Substance: TOCILIZUMAB
     Indication: Rheumatoid arthritis
     Dosage: UNK
     Route: 040
  233. TOCILIZUMAB [Suspect]
     Active Substance: TOCILIZUMAB
     Dosage: UNK
     Route: 065
  234. TOCILIZUMAB [Suspect]
     Active Substance: TOCILIZUMAB
     Dosage: 8.0 MILLIGRAM
     Route: 040
  235. TOCILIZUMAB [Suspect]
     Active Substance: TOCILIZUMAB
     Dosage: UNK
     Route: 058
  236. TOCILIZUMAB [Suspect]
     Active Substance: TOCILIZUMAB
     Dosage: 8.0 MILLIGRAM
     Route: 065
  237. TOCILIZUMAB [Suspect]
     Active Substance: TOCILIZUMAB
     Dosage: 160.0 MILLIGRAM
     Route: 065
  238. TOCILIZUMAB [Suspect]
     Active Substance: TOCILIZUMAB
     Dosage: 162.0 MILLIGRAM
     Route: 058
  239. TOFACITINIB [Suspect]
     Active Substance: TOFACITINIB
     Indication: Rheumatoid arthritis
     Dosage: UNK
     Route: 065
  240. TOFACITINIB [Suspect]
     Active Substance: TOFACITINIB
     Dosage: 10.0 MILLIGRAM,1 EVERY 1 DAYS
     Route: 048
  241. TOFACITINIB [Suspect]
     Active Substance: TOFACITINIB
     Dosage: 10.0 MILLIGRAM,1 EVERY 1 DAYS
     Route: 065
  242. TOPIRAMATE [Suspect]
     Active Substance: TOPIRAMATE
     Indication: Product used for unknown indication
     Dosage: 25.0 MILLIGRAM,1 EVERY 1 DAYS
     Route: 065
  243. TOPIRAMATE [Suspect]
     Active Substance: TOPIRAMATE
     Dosage: 25.0 MILLIGRAM
     Route: 065
  244. TOPIRAMATE [Suspect]
     Active Substance: TOPIRAMATE
     Dosage: 3.0 MILLIGRAM,1 EVERY 1 DAYS
     Route: 065
  245. USTEKINUMAB [Suspect]
     Active Substance: USTEKINUMAB
     Indication: Product used for unknown indication
     Dosage: UNK
     Route: 058
  246. USTEKINUMAB [Suspect]
     Active Substance: USTEKINUMAB
     Dosage: 40.0 MILLIGRAM
     Route: 058
  247. USTEKINUMAB [Suspect]
     Active Substance: USTEKINUMAB
     Dosage: 40.0 MILLIGRAM
     Route: 065
  248. XELJANZ [Suspect]
     Active Substance: TOFACITINIB CITRATE
     Indication: Rheumatoid arthritis
     Dosage: 10.0 MILLIGRAM,1 EVERY 1 DAYS
     Route: 048
  249. XELJANZ [Suspect]
     Active Substance: TOFACITINIB CITRATE
     Dosage: UNK
     Route: 065
  250. XELJANZ [Suspect]
     Active Substance: TOFACITINIB CITRATE
     Dosage: 5.0 MILLIGRAM
     Route: 065
  251. XELJANZ [Suspect]
     Active Substance: TOFACITINIB CITRATE
     Dosage: 10.0 MILLIGRAM,1 EVERY 1 DAYS
     Route: 065
  252. XELJANZ [Suspect]
     Active Substance: TOFACITINIB CITRATE
     Dosage: 20.0 MILLIGRAM,1 EVERY 1 DAYS
     Route: 065

REACTIONS (43)
  - Abdominal discomfort [Fatal]
  - Abdominal distension [Fatal]
  - Adverse reaction [Fatal]
  - Alopecia [Fatal]
  - Anti-cyclic citrullinated peptide antibody positive [Fatal]
  - Arthralgia [Fatal]
  - Arthropathy [Fatal]
  - Blood cholesterol increased [Fatal]
  - Bursitis [Fatal]
  - Coeliac disease [Fatal]
  - C-reactive protein increased [Fatal]
  - Condition aggravated [Fatal]
  - Confusional state [Fatal]
  - Decreased appetite [Fatal]
  - Drug intolerance [Fatal]
  - Drug-induced liver injury [Fatal]
  - Dyspepsia [Fatal]
  - Fatigue [Fatal]
  - Exposure during pregnancy [Fatal]
  - Folliculitis [Fatal]
  - Gastrointestinal disorder [Fatal]
  - Gastrooesophageal reflux disease [Fatal]
  - General physical health deterioration [Fatal]
  - Glossodynia [Fatal]
  - Grip strength decreased [Fatal]
  - Hand deformity [Fatal]
  - Headache [Fatal]
  - Hepatic enzyme increased [Fatal]
  - Hypersensitivity [Fatal]
  - Hypertension [Fatal]
  - Hypoaesthesia [Fatal]
  - Inflammation [Fatal]
  - Insomnia [Fatal]
  - Irritable bowel syndrome [Fatal]
  - Joint swelling [Fatal]
  - Live birth [Fatal]
  - Malaise [Fatal]
  - Maternal exposure during pregnancy [Fatal]
  - Mobility decreased [Fatal]
  - Musculoskeletal stiffness [Fatal]
  - Nail disorder [Fatal]
  - Off label use [Fatal]
  - Product label confusion [Fatal]
